FAERS Safety Report 6393762-8 (Version None)
Quarter: 2009Q4

REPORT INFORMATION
  Report Type: 
  Country: None (occurrence: None)
  Receive Date: 20091008
  Receipt Date: 20090929
  Transmission Date: 20100525
  Serious: Yes (Other)
  Sender: FDA-Public Use
  Company Number: US-PFIZER INC-2009255309

PATIENT
  Sex: Male
  Weight: 94.331 kg

DRUGS (18)
  1. NEURONTIN [Suspect]
     Indication: NEURALGIA
     Dosage: UNK
     Route: 048
     Dates: start: 20050301
  2. LYRICA [Suspect]
     Indication: NEURALGIA
     Dosage: UNK
     Route: 048
     Dates: start: 20050501
  3. CYMBALTA [Suspect]
     Indication: SPINAL CORD COMPRESSION
     Dosage: 60 MG, 1X/DAY
     Route: 048
  4. VALIUM [Concomitant]
     Dosage: 1/2 IN THE MORNING, 1 IN THE AFTERNOON AND 1 AT NIGHT PRN
     Dates: start: 20090922
  5. WELLBUTRIN XL [Concomitant]
     Dosage: 150 MG, 1X/DAY
     Route: 048
     Dates: start: 20080813
  6. TERAZOSIN [Concomitant]
     Dosage: 10 MG, 1X/DAY
     Route: 048
     Dates: start: 20070802
  7. AEROBID [Concomitant]
     Dosage: 2 PUFFS BID
     Dates: start: 20090628
  8. NORCO [Concomitant]
     Dosage: 10/325MG, 1 IN THE MORNING AND 1/2 TABLET THREE MORE TIMES THROUGH THE DAY
     Dates: start: 20090922
  9. NIASPAN [Concomitant]
     Indication: HYPERLIPIDAEMIA
     Dosage: ONE A DAY
     Dates: start: 20070815
  10. MARINOL [Concomitant]
     Dosage: 5 MG, ONE A DAY PRN
     Dates: start: 20090504
  11. SKELAXIN [Concomitant]
     Dosage: 800 MG, 1 TID PRN
     Dates: start: 20090522
  12. PROVENTIL GENTLEHALER [Concomitant]
     Dosage: 2 PUFFS TWICE A DAY
     Route: 048
     Dates: start: 20080620
  13. TRIAMCINOLONE ACETONIDE [Concomitant]
     Indication: PRURITUS
     Dosage: APPLY BID
     Dates: start: 20090219
  14. UREA [Concomitant]
     Indication: DRY SKIN
     Dosage: APPLY TWICE DAILY
     Dates: start: 20090219
  15. ECONAZOLE NITRATE [Concomitant]
     Dosage: APPLY BID
     Dates: start: 20090219
  16. LEVOXYL [Concomitant]
     Dosage: 125 UG, 1X/DAY
     Route: 048
     Dates: start: 20090723
  17. FLUTICASONE PROPIONATE [Concomitant]
     Dosage: 2 SPRAYS INTO EACH NOSTRIL ONCE A DAY
     Route: 045
     Dates: start: 20090908
  18. LOPID [Concomitant]
     Dosage: 600 MG, 2X/DAY
     Route: 048
     Dates: start: 20090917

REACTIONS (12)
  - ABDOMINAL DISTENSION [None]
  - CONFUSIONAL STATE [None]
  - DISORIENTATION [None]
  - DISTURBANCE IN ATTENTION [None]
  - DIZZINESS [None]
  - DRY MOUTH [None]
  - HEADACHE [None]
  - LOW DENSITY LIPOPROTEIN INCREASED [None]
  - MUSCLE SPASMS [None]
  - NIGHTMARE [None]
  - VOMITING [None]
  - WEIGHT DECREASED [None]
